FAERS Safety Report 17990058 (Version 2)
Quarter: 2021Q2

REPORT INFORMATION
  Report Type: Spontaneous
  Country: US (occurrence: US)
  Receive Date: 20200707
  Receipt Date: 20210412
  Transmission Date: 20210717
  Serious: Yes (Other)
  Sender: FDA-Public Use
  Company Number: US-GLAXOSMITHKLINE-US2020120929

PATIENT
  Sex: Female

DRUGS (17)
  1. RANITIDINE. [Suspect]
     Active Substance: RANITIDINE
     Route: 065
     Dates: start: 20130615, end: 20200115
  2. ZANTAC [Suspect]
     Active Substance: RANITIDINE HYDROCHLORIDE
     Indication: ABDOMINAL DISCOMFORT
     Dosage: 25 MG, AS NEEDED; THEN PROGRESSIVELY MOVED TO TAKING DAILY
     Route: 065
     Dates: start: 200501, end: 201912
  3. RANITIDINE. [Suspect]
     Active Substance: RANITIDINE
     Indication: ABDOMINAL DISCOMFORT
     Dosage: 150 MG, QD
     Route: 065
     Dates: start: 200501, end: 201912
  4. RANITIDINE. [Suspect]
     Active Substance: RANITIDINE
     Indication: HYPERCHLORHYDRIA
  5. RANITIDINE CAPSULE [Suspect]
     Active Substance: RANITIDINE
     Indication: HIATUS HERNIA
     Dosage: 50 MG, AS NEEDED; THEN PROGRESSIVELY MOVED TO TAKING DAILY
     Route: 065
     Dates: start: 200501, end: 201912
  6. ZANTAC [Suspect]
     Active Substance: RANITIDINE HYDROCHLORIDE
     Indication: HIATUS HERNIA
     Dosage: 50 MG, AS NEEDED; THEN PROGRESSIVELY MOVED TO TAKING DAILY
     Route: 065
     Dates: start: 200501, end: 201912
  7. ZANTAC [Suspect]
     Active Substance: RANITIDINE HYDROCHLORIDE
     Indication: GASTROOESOPHAGEAL REFLUX DISEASE
  8. RANITIDINE. [Suspect]
     Active Substance: RANITIDINE
     Indication: HYPERCHLORHYDRIA
  9. RANITIDINE. [Suspect]
     Active Substance: RANITIDINE
     Indication: ABDOMINAL DISCOMFORT
     Dosage: 150 MG, QD
     Route: 065
     Dates: start: 200501, end: 201912
  10. RANITIDINE. [Suspect]
     Active Substance: RANITIDINE
     Indication: HIATUS HERNIA
  11. RANITIDINE. [Suspect]
     Active Substance: RANITIDINE
     Indication: GASTROOESOPHAGEAL REFLUX DISEASE
  12. RANITIDINE CAPSULE [Suspect]
     Active Substance: RANITIDINE
     Indication: ABDOMINAL DISCOMFORT
     Dosage: 25 MG, AS NEEDED; THEN PROGRESSIVELY MOVED TO TAKING DAILY
     Route: 065
     Dates: start: 200501, end: 201912
  13. RANITIDINE CAPSULE [Suspect]
     Active Substance: RANITIDINE
     Indication: HYPERCHLORHYDRIA
     Dosage: UNKNOWN AT THIS TIME, AS NEEDED; THEN PROGRESSIVELY MOVED TO TAKING DAILY
     Route: 065
     Dates: start: 200501, end: 201912
  14. RANITIDINE. [Suspect]
     Active Substance: RANITIDINE
     Indication: HIATUS HERNIA
  15. RANITIDINE CAPSULE [Suspect]
     Active Substance: RANITIDINE
     Indication: GASTROOESOPHAGEAL REFLUX DISEASE
  16. ZANTAC [Suspect]
     Active Substance: RANITIDINE HYDROCHLORIDE
     Indication: HYPERCHLORHYDRIA
     Dosage: UNKNOWN AT THIS TIME, AS NEEDED; THEN PROGRESSIVELY MOVED TO TAKING DAILY
     Route: 065
     Dates: start: 200501, end: 201912
  17. RANITIDINE. [Suspect]
     Active Substance: RANITIDINE
     Indication: GASTROOESOPHAGEAL REFLUX DISEASE

REACTIONS (1)
  - Chronic myeloid leukaemia [Unknown]
